FAERS Safety Report 15899447 (Version 2)
Quarter: 2019Q1

REPORT INFORMATION
  Report Type: Spontaneous
  Country: US (occurrence: US)
  Receive Date: 20190201
  Receipt Date: 20190314
  Transmission Date: 20190417
  Serious: No
  Sender: FDA-Public Use
  Company Number: US-ASTRAZENECA-2019SE15043

PATIENT
  Age: 812 Month
  Sex: Female
  Weight: 102.1 kg

DRUGS (1)
  1. TUDORZA PRESSAIR [Suspect]
     Active Substance: ACLIDINIUM BROMIDE
     Indication: CHRONIC OBSTRUCTIVE PULMONARY DISEASE
     Dosage: 400UG/INHAL TWO TIMES A DAY
     Route: 055
     Dates: start: 2014

REACTIONS (6)
  - Malaise [Unknown]
  - Dry mouth [Unknown]
  - Device issue [Unknown]
  - Localised infection [Unknown]
  - Nasopharyngitis [Unknown]
  - Visual impairment [Unknown]

NARRATIVE: CASE EVENT DATE: 201811
